FAERS Safety Report 11217564 (Version 6)
Quarter: 2015Q3

REPORT INFORMATION
  Report Type: Spontaneous
  Country: US (occurrence: None)
  Receive Date: 20150623
  Receipt Date: 20150922
  Transmission Date: 20151125
  Serious: Yes (Hospitalization, Other)
  Sender: FDA-Public Use
  Company Number: ADR-2015-01176

PATIENT
  Age: 54 Year
  Sex: Female

DRUGS (2)
  1. COMPOUNDED BACLOFEN INTRATHECAL 450 MCG/ML [Suspect]
     Active Substance: BACLOFEN
     Indication: PRODUCT USED FOR UNKNOWN INDICATION
     Dosage: 28.20 MCG/DAY
  2. MORPHINE INTRATHECAL 30 MG/ML [Suspect]
     Active Substance: MORPHINE

REACTIONS (15)
  - Depressed level of consciousness [None]
  - Muscle spasticity [None]
  - Drug withdrawal syndrome [None]
  - Feeling abnormal [None]
  - Dizziness [None]
  - Mental impairment [None]
  - Underdose [None]
  - Disorientation [None]
  - Tinnitus [None]
  - Vomiting [None]
  - Muscle tightness [None]
  - Fatigue [None]
  - Malaise [None]
  - Pain [None]
  - Influenza like illness [None]
